FAERS Safety Report 7204688 (Version 19)
Quarter: 2014Q1

REPORT INFORMATION
  Report Type: Spontaneous
  Country: US (occurrence: US)
  Receive Date: 20091208
  Receipt Date: 20140207
  Transmission Date: 20141002
  Serious: Yes (Other)
  Sender: FDA-Public Use
  Company Number: PHEH2009US16959

PATIENT
  Sex: Female

DRUGS (15)
  1. ZOMETA [Suspect]
     Indication: METASTASES TO BONE
     Route: 042
  2. FOSAMAX [Suspect]
  3. NEUPOGEN [Suspect]
  4. CHEMOTHERAPEUTICS NOS [Suspect]
  5. CARBOPLATIN [Suspect]
  6. ALOXI [Concomitant]
  7. DECADRON                                /CAN/ [Concomitant]
  8. ALIMTA [Concomitant]
  9. VITAMIN B12 [Concomitant]
  10. NEULASTA [Concomitant]
  11. AVASTIN [Concomitant]
  12. ALTACE [Concomitant]
  13. GABAPENTIN [Concomitant]
  14. ATIVAN [Concomitant]
  15. LORTAB [Concomitant]

REACTIONS (104)
  - Osteonecrosis of jaw [Unknown]
  - Injury [Unknown]
  - Pain [Unknown]
  - Anxiety [Unknown]
  - Anhedonia [Unknown]
  - Hypoaesthesia [Unknown]
  - Stomatitis [Unknown]
  - Periodontal disease [Unknown]
  - Osteomyelitis [Unknown]
  - Tooth abscess [Unknown]
  - Metastases to lung [Unknown]
  - Fatigue [Unknown]
  - Arthralgia [Unknown]
  - Anaemia [Unknown]
  - Blood erythropoietin increased [Unknown]
  - Drug hypersensitivity [Recovered/Resolved]
  - Nausea [Recovered/Resolved]
  - Vomiting [Recovered/Resolved]
  - Dizziness [Recovered/Resolved]
  - Blood pressure decreased [Recovered/Resolved]
  - Red blood cell count decreased [Unknown]
  - Haemoglobin decreased [Unknown]
  - Hepatic cyst [Unknown]
  - Breast cancer metastatic [Unknown]
  - Metastases to bone [Unknown]
  - Osteolysis [Unknown]
  - Spinal osteoarthritis [Unknown]
  - Pleural effusion [Unknown]
  - Uterine leiomyoma [Unknown]
  - Lymphadenopathy [Unknown]
  - Lymphadenitis [Unknown]
  - Osteoporosis [Unknown]
  - Dyspnoea exertional [Unknown]
  - Local swelling [Unknown]
  - Patella fracture [Unknown]
  - Neuropathy peripheral [Unknown]
  - Serum ferritin increased [Unknown]
  - White blood cell count decreased [Unknown]
  - Vitamin B12 increased [Unknown]
  - Osteopenia [Unknown]
  - Oral cavity fistula [Unknown]
  - Bone loss [Unknown]
  - Exposed bone in jaw [Unknown]
  - Tooth loss [Unknown]
  - Rhinitis allergic [Unknown]
  - Oral infection [Unknown]
  - Mass [Unknown]
  - Gastroenteritis viral [Unknown]
  - Abdominal pain [Recovering/Resolving]
  - Dysphagia [Recovering/Resolving]
  - Intervertebral disc protrusion [Unknown]
  - Emphysema [Unknown]
  - Radiculopathy [Unknown]
  - Bone pain [Unknown]
  - Inguinal mass [Unknown]
  - Osteoradionecrosis [Unknown]
  - Hypothyroidism [Unknown]
  - Insomnia [Unknown]
  - Haemorrhoids [Unknown]
  - Hiatus hernia [Unknown]
  - Duodenitis [Unknown]
  - Oesophageal stenosis [Unknown]
  - Diaphragmatic hernia [Unknown]
  - Carotid artery stenosis [Unknown]
  - Carotid artery occlusion [Unknown]
  - Cerebral infarction [Unknown]
  - Pain in jaw [Unknown]
  - Gastritis [Unknown]
  - Syncope [Unknown]
  - Tachycardia [Unknown]
  - Plantar fasciitis [Unknown]
  - Pain in extremity [Unknown]
  - Peripheral vascular disorder [Unknown]
  - Carotid bruit [Unknown]
  - Renal failure chronic [Unknown]
  - Aortic arteriosclerosis [Unknown]
  - Hyperlipidaemia [Unknown]
  - Metastases to lymph nodes [Unknown]
  - Chronic obstructive pulmonary disease [Unknown]
  - Leukocytosis [Unknown]
  - Coronary artery disease [Unknown]
  - Deep vein thrombosis [Unknown]
  - Metatarsalgia [Unknown]
  - Pulmonary hypertension [Unknown]
  - Paraesthesia [Unknown]
  - Aortic valve incompetence [Unknown]
  - Intermittent claudication [Unknown]
  - Peripheral artery stenosis [Unknown]
  - Vascular calcification [Unknown]
  - Limb discomfort [Unknown]
  - Aortic disorder [Unknown]
  - Arteriosclerosis coronary artery [Unknown]
  - Asthma [Unknown]
  - Oesophagitis [Unknown]
  - Gastrooesophageal reflux disease [Unknown]
  - Oesophageal dilatation [Unknown]
  - Gastritis erosive [Unknown]
  - Constipation [Unknown]
  - Decreased appetite [Unknown]
  - Contusion [Unknown]
  - Chest pain [Unknown]
  - Oedema peripheral [Unknown]
  - Bone marrow failure [Unknown]
  - Neutropenia [Unknown]
